FAERS Safety Report 25934511 (Version 1)
Quarter: 2025Q4

REPORT INFORMATION
  Report Type: Spontaneous
  Country: US (occurrence: US)
  Receive Date: 20251017
  Receipt Date: 20251017
  Transmission Date: 20260117
  Serious: Yes (Hospitalization)
  Sender: NOVARTIS
  Company Number: US-002147023-NVSC2025US156682

PATIENT
  Sex: Female

DRUGS (2)
  1. MEKINIST [Suspect]
     Active Substance: TRAMETINIB DIMETHYL SULFOXIDE
     Indication: Neoplasm
     Dosage: 1.5 MG, QD
     Route: 048
     Dates: start: 20240209
  2. TAFINLAR [Suspect]
     Active Substance: DABRAFENIB MESYLATE
     Indication: Neoplasm
     Dosage: 100 MG, BID
     Route: 048
     Dates: start: 20240209

REACTIONS (1)
  - Pneumonia [Unknown]
